FAERS Safety Report 11647946 (Version 1)
Quarter: 2015Q4

REPORT INFORMATION
  Report Type: Spontaneous
  Country: IL (occurrence: IL)
  Receive Date: 20151021
  Receipt Date: 20151021
  Transmission Date: 20160304
  Serious: Yes (Hospitalization, Other)
  Sender: FDA-Public Use
  Company Number: PHHY2015IL134540

PATIENT
  Age: 47 Year
  Sex: Female

DRUGS (15)
  1. TAFINLAR [Suspect]
     Active Substance: DABRAFENIB MESYLATE
     Dosage: (30 ? 2 + 15 ? )90 MG, QD
     Route: 048
  2. TAFINLAR [Suspect]
     Active Substance: DABRAFENIB MESYLATE
     Dosage: 200 MG, QD 950 ? 4 0
     Route: 048
  3. TAFINLAR [Suspect]
     Active Substance: DABRAFENIB MESYLATE
     Dosage: 300 MG, QD (150 ? 1 + 50 ? 3)
     Route: 048
  4. TAFINLAR [Suspect]
     Active Substance: DABRAFENIB MESYLATE
     Indication: BRAF GENE MUTATION
     Dosage: 15 MG, BID (15?2 )
     Route: 048
  5. TAFINLAR [Suspect]
     Active Substance: DABRAFENIB MESYLATE
     Dosage: 15 MG, TID (15?3)
     Route: 048
  6. TAFINLAR [Suspect]
     Active Substance: DABRAFENIB MESYLATE
     Dosage: 140 MG, QD (50 ? 1 + 30 ? 3 0
     Route: 048
  7. TAFINLAR [Suspect]
     Active Substance: DABRAFENIB MESYLATE
     Dosage: 225 MG, QD (75 ? 1 + 50 ? 3)
     Route: 048
  8. TAFINLAR [Suspect]
     Active Substance: DABRAFENIB MESYLATE
     Dosage: 300 MG, QD (150 ? 2 )
  9. TAFINLAR [Suspect]
     Active Substance: DABRAFENIB MESYLATE
     Indication: METASTATIC MALIGNANT MELANOMA
     Dosage: 15 MG, QD ( 15?1 )
     Route: 048
  10. TAFINLAR [Suspect]
     Active Substance: DABRAFENIB MESYLATE
     Dosage: 15 MG, QID(60 MG/D)
     Route: 048
  11. TAFINLAR [Suspect]
     Active Substance: DABRAFENIB MESYLATE
     Dosage: 180 MG, QD (50 ? 3 + 30 ? 1)
     Route: 048
  12. TAFINLAR [Suspect]
     Active Substance: DABRAFENIB MESYLATE
     Dosage: 250 MG/DL, QD (75 ? 2 + 50 ? 2)
     Route: 048
  13. TAFINLAR [Suspect]
     Active Substance: DABRAFENIB MESYLATE
     Dosage: 75 MG, QD (30 ? 1 + 15 ? 3 )
     Route: 048
  14. TAFINLAR [Suspect]
     Active Substance: DABRAFENIB MESYLATE
     Dosage: 105 MG, QD (30 ? 3 + 15 ? )
     Route: 048
  15. TAFINLAR [Suspect]
     Active Substance: DABRAFENIB MESYLATE
     Dosage: 120 MG, QD (30 ? 4 0
     Route: 048

REACTIONS (12)
  - Pruritus [Unknown]
  - Throat tightness [Unknown]
  - Malignant neoplasm progression [Unknown]
  - General physical health deterioration [Unknown]
  - Hypersensitivity [Unknown]
  - Urticaria [Unknown]
  - Swelling face [Unknown]
  - Flushing [Unknown]
  - Stridor [Unknown]
  - Angioedema [Unknown]
  - Pharyngeal oedema [Unknown]
  - Dyspnoea [Unknown]
